FAERS Safety Report 22638972 (Version 1)
Quarter: 2023Q2

REPORT INFORMATION
  Report Type: Report from Study
  Country: US (occurrence: US)
  Receive Date: 20230626
  Receipt Date: 20230626
  Transmission Date: 20230722
  Serious: Yes (Other)
  Sender: FDA-Public Use
  Company Number: US-BEH-2023158084

PATIENT
  Age: 57 Year
  Sex: Male
  Weight: 158.73 kg

DRUGS (1)
  1. HIZENTRA [Suspect]
     Active Substance: HUMAN IMMUNOGLOBULIN G
     Indication: Chronic inflammatory demyelinating polyradiculoneuropathy
     Dosage: UNK, QW
     Route: 058
     Dates: start: 20230410, end: 20230605

REACTIONS (8)
  - Dehydration [Not Recovered/Not Resolved]
  - Malabsorption from administration site [Not Recovered/Not Resolved]
  - No adverse event [Not Recovered/Not Resolved]
  - Product use complaint [Not Recovered/Not Resolved]
  - Drug ineffective [Not Recovered/Not Resolved]
  - Movement disorder [Not Recovered/Not Resolved]
  - Contusion [Not Recovered/Not Resolved]
  - Haemorrhage [Not Recovered/Not Resolved]

NARRATIVE: CASE EVENT DATE: 20230410
